FAERS Safety Report 6880511-X (Version None)
Quarter: 2010Q3

REPORT INFORMATION
  Report Type: 
  Country: None (occurrence: None)
  Receive Date: 20100727
  Receipt Date: 20100721
  Transmission Date: 20110219
  Serious: Yes (Death, Hospitalization)
  Sender: FDA-Public Use
  Company Number: A0872170A

PATIENT
  Age: 54 Year
  Sex: Male

DRUGS (1)
  1. ROSIGLITAZONE [Suspect]
     Dosage: 4MG TWICE PER DAY
     Route: 048
     Dates: start: 20040101, end: 20050101

REACTIONS (2)
  - DEATH [None]
  - MYOCARDIAL INFARCTION [None]
